FAERS Safety Report 16388508 (Version 1)
Quarter: 2019Q2

REPORT INFORMATION
  Report Type: Spontaneous
  Country: US (occurrence: US)
  Receive Date: 20190604
  Receipt Date: 20190604
  Transmission Date: 20190711
  Serious: No
  Sender: FDA-Public Use
  Company Number: US-BAUSCH-BL-2018-016856

PATIENT
  Age: 41 Year
  Sex: Male
  Weight: 90.8 kg

DRUGS (3)
  1. ELIDEL [Suspect]
     Active Substance: PIMECROLIMUS
     Route: 061
  2. ELIDEL [Suspect]
     Active Substance: PIMECROLIMUS
     Indication: DERMATITIS
     Route: 061
     Dates: start: 2016
  3. ELIDEL [Suspect]
     Active Substance: PIMECROLIMUS
     Route: 061

REACTIONS (6)
  - Incorrect dose administered [Recovered/Resolved]
  - Administration site discolouration [Not Recovered/Not Resolved]
  - Skin atrophy [Not Recovered/Not Resolved]
  - Lipoatrophy [Not Recovered/Not Resolved]
  - Eyelid disorder [Not Recovered/Not Resolved]
  - Dermatitis [Not Recovered/Not Resolved]

NARRATIVE: CASE EVENT DATE: 2018
